FAERS Safety Report 25102674 (Version 1)
Quarter: 2025Q1

REPORT INFORMATION
  Report Type: Spontaneous
  Country: GR (occurrence: GR)
  Receive Date: 20250321
  Receipt Date: 20250321
  Transmission Date: 20250408
  Serious: Yes (Other)
  Sender: RANBAXY
  Company Number: GR-SUN PHARMACEUTICAL INDUSTRIES LTD-2025R1-499367

PATIENT
  Age: 44 Year
  Sex: Male

DRUGS (2)
  1. MESALAMINE [Suspect]
     Active Substance: MESALAMINE
     Indication: Colitis ulcerative
     Route: 065
  2. INFLIXIMAB [Suspect]
     Active Substance: INFLIXIMAB
     Indication: Colitis ulcerative
     Route: 065

REACTIONS (2)
  - Treatment noncompliance [Unknown]
  - Condition aggravated [Unknown]
